FAERS Safety Report 11366063 (Version 1)
Quarter: 2015Q3

REPORT INFORMATION
  Report Type: Spontaneous
  Country: US (occurrence: US)
  Receive Date: 20150811
  Receipt Date: 20150811
  Transmission Date: 20151125
  Serious: Yes (Other)
  Sender: FDA-Public Use
  Company Number: US-BAYER-2015-397979

PATIENT
  Age: 73 Year
  Sex: Male

DRUGS (1)
  1. MIRALAX [Suspect]
     Active Substance: POLYETHYLENE GLYCOL 3350
     Indication: COLONOSCOPY
     Dosage: UNK

REACTIONS (9)
  - Cardiac disorder [Unknown]
  - Skin burning sensation [Unknown]
  - Insomnia [Unknown]
  - Stress [Unknown]
  - Rash papular [Unknown]
  - Nausea [Unknown]
  - Intentional overdose [Unknown]
  - Dizziness [Unknown]
  - Product use issue [Unknown]
